FAERS Safety Report 13366113 (Version 1)
Quarter: 2017Q1

REPORT INFORMATION
  Report Type: Spontaneous
  Country: FR (occurrence: FR)
  Receive Date: 20170323
  Receipt Date: 20170323
  Transmission Date: 20170429
  Serious: Yes (Other)
  Sender: FDA-Public Use
  Company Number: FR-SA-2017SA044588

PATIENT
  Age: 54 Year
  Sex: Male
  Weight: 81 kg

DRUGS (34)
  1. DALACINE [Suspect]
     Active Substance: CLINDAMYCIN HYDROCHLORIDE
     Dosage: 4 DAY
     Route: 065
     Dates: start: 20170111, end: 20170208
  2. TARDYFERON [Suspect]
     Active Substance: FERROUS SULFATE
     Route: 048
     Dates: start: 201702, end: 20170304
  3. PARACETAMOL [Suspect]
     Active Substance: ACETAMINOPHEN
     Dosage: 4 DAY
     Route: 048
     Dates: start: 20170203
  4. LOVENOX [Suspect]
     Active Substance: ENOXAPARIN SODIUM
     Route: 058
     Dates: start: 20161223, end: 20170306
  5. RIFADINE [Suspect]
     Active Substance: RIFAMPIN
     Route: 042
     Dates: start: 20170208, end: 20170304
  6. AUGMENTIN [Suspect]
     Active Substance: AMOXICILLIN\CLAVULANATE POTASSIUM
     Dosage: 3 DAY
     Route: 048
     Dates: start: 20170106, end: 20170109
  7. ACTISKENAN [Suspect]
     Active Substance: MORPHINE SULFATE
     Dosage: 4 DAY
     Route: 048
     Dates: start: 201702
  8. HUMALOG [Suspect]
     Active Substance: INSULIN LISPRO
     Dosage: 3 DAY
     Route: 058
  9. OFLOCET [Suspect]
     Active Substance: OFLOXACIN
     Dosage: FORM-INJECTABLE SOLUTION FOR INFUSION
     Route: 042
     Dates: start: 20170109, end: 20170111
  10. LANTUS [Suspect]
     Active Substance: INSULIN GLARGINE
     Route: 058
  11. DIAMICRON [Suspect]
     Active Substance: GLICLAZIDE
     Route: 048
     Dates: start: 20170207
  12. VERSATIS [Suspect]
     Active Substance: LIDOCAINE
     Route: 003
     Dates: end: 20170207
  13. LANSOYL [Suspect]
     Active Substance: MINERAL OIL
     Route: 048
  14. TAVANIC [Suspect]
     Active Substance: LEVOFLOXACIN
     Dosage: DAILY DOSE-1DF,2 DAY
     Route: 042
     Dates: start: 20170208, end: 20170304
  15. PERINDOPRIL [Suspect]
     Active Substance: PERINDOPRIL
     Route: 048
  16. ACUPAN [Suspect]
     Active Substance: NEFOPAM HYDROCHLORIDE
     Route: 048
  17. OXYNORM [Suspect]
     Active Substance: OXYCODONE HYDROCHLORIDE
     Route: 048
  18. HEPARIN [Suspect]
     Active Substance: HEPARIN SODIUM
     Route: 058
     Dates: start: 20170122, end: 20170131
  19. METFORMIN [Suspect]
     Active Substance: METFORMIN HYDROCHLORIDE
     Dosage: FREQUENCY-3 DAY
     Route: 048
     Dates: start: 20170206
  20. IMOVANE [Suspect]
     Active Substance: ZOPICLONE
     Route: 048
     Dates: start: 201702
  21. ZOPHREN [Suspect]
     Active Substance: ONDANSETRON
     Route: 042
     Dates: start: 20170105
  22. LORMETAZEPAM [Suspect]
     Active Substance: LORMETAZEPAM
     Route: 048
  23. OXYCONTIN [Suspect]
     Active Substance: OXYCODONE HYDROCHLORIDE
     Route: 048
     Dates: start: 201702, end: 20170304
  24. TRAMADOL. [Suspect]
     Active Substance: TRAMADOL
     Route: 048
     Dates: start: 20170203
  25. CLOPIDOGREL BISULFATE. [Suspect]
     Active Substance: CLOPIDOGREL BISULFATE
     Route: 048
     Dates: end: 20161212
  26. LYRICA [Suspect]
     Active Substance: PREGABALIN
     Dosage: 3 DAY
     Route: 048
     Dates: start: 20170207
  27. ATARAX [Suspect]
     Active Substance: HYDROXYZINE HYDROCHLORIDE
     Dosage: 4 DAY
     Route: 048
     Dates: start: 20170129, end: 20170207
  28. GABAPENTIN. [Suspect]
     Active Substance: GABAPENTIN
     Dosage: 3 DAY
     Route: 048
     Dates: end: 20170113
  29. KARDEGIC [Suspect]
     Active Substance: ASPIRIN LYSINE
     Route: 048
     Dates: start: 20161212, end: 20170218
  30. OMEPRAZOLE. [Suspect]
     Active Substance: OMEPRAZOLE
     Route: 048
     Dates: end: 20170207
  31. ATORVASTATIN [Suspect]
     Active Substance: ATORVASTATIN
     Route: 048
     Dates: end: 20170112
  32. TAZOCILLINE [Suspect]
     Active Substance: PIPERACILLIN SODIUM\TAZOBACTAM SODIUM
     Dosage: 3 DAY
     Route: 042
     Dates: start: 20170208, end: 20170304
  33. VENOFER [Suspect]
     Active Substance: IRON SUCROSE
     Route: 042
     Dates: start: 20170201, end: 20170205
  34. MOVICOL [Suspect]
     Active Substance: POLYETHYLENE GLYCOL 3350\POTASSIUM CHLORIDE\SODIUM BICARBONATE\SODIUM CHLORIDE
     Route: 048

REACTIONS (4)
  - Rash maculo-papular [Recovering/Resolving]
  - Hyperthermia [Recovered/Resolved]
  - Pancytopenia [Recovering/Resolving]
  - Chills [Recovered/Resolved]

NARRATIVE: CASE EVENT DATE: 20170304
